FAERS Safety Report 25484801 (Version 2)
Quarter: 2025Q3

REPORT INFORMATION
  Report Type: Spontaneous
  Country: JP (occurrence: JP)
  Receive Date: 20250626
  Receipt Date: 20250708
  Transmission Date: 20251021
  Serious: No
  Sender: ASTELLAS
  Company Number: JP-ASTELLAS-2025-AER-033698

PATIENT
  Age: 92 Year
  Sex: Male

DRUGS (2)
  1. HARNAL [Suspect]
     Active Substance: TAMSULOSIN HYDROCHLORIDE
     Indication: Product used for unknown indication
     Route: 048
  2. VESICARE [Suspect]
     Active Substance: SOLIFENACIN SUCCINATE
     Indication: Product used for unknown indication
     Route: 048

REACTIONS (2)
  - Dysphagia [Unknown]
  - Product prescribing issue [Unknown]
